FAERS Safety Report 8876179 (Version 2)
Quarter: 2012Q4

REPORT INFORMATION
  Report Type: 
  Country: DK (occurrence: DK)
  Receive Date: 20121023
  Receipt Date: 20121116
  Transmission Date: 20130627
  Serious: Yes (Hospitalization)
  Sender: FDA-Public Use
  Company Number: DK-WATSON-2012-18205

PATIENT
  Age: 62 Year
  Sex: Male

DRUGS (4)
  1. METFORMIN HYDROCHLORIDE [Suspect]
     Indication: TYPE 2 DIABETES MELLITUS
     Dosage: 2000 mg, daily
     Route: 065
  2. GLIMEPIRIDE [Concomitant]
     Indication: TYPE 2 DIABETES MELLITUS
     Dosage: UNK
     Route: 065
  3. LOSARTAN/HYDROCHLOORTHIAZIDE [Concomitant]
     Indication: TYPE 2 DIABETES MELLITUS
     Dosage: UNK
     Route: 065
  4. PARACETAMOL [Concomitant]
     Indication: TYPE 2 DIABETES MELLITUS
     Dosage: UNK
     Route: 065

REACTIONS (11)
  - Lactic acidosis [Recovered/Resolved with Sequelae]
  - Cardiac arrest [Recovered/Resolved with Sequelae]
  - Respiratory arrest [Unknown]
  - Bradycardia [Recovered/Resolved with Sequelae]
  - Oliguria [Recovered/Resolved with Sequelae]
  - Nausea [None]
  - Vomiting [None]
  - Pallor [None]
  - Confusional state [None]
  - Kussmaul respiration [None]
  - Abdominal pain [None]
